FAERS Safety Report 5936192-2 (Version None)
Quarter: 2008Q4

REPORT INFORMATION
  Report Type: 
  Country: None (occurrence: None)
  Receive Date: 20081028
  Receipt Date: 20081015
  Transmission Date: 20090506
  Serious: Yes (Life-Threatening, Hospitalization, Other)
  Sender: FDA-Public Use
  Company Number: 2008AL011376

PATIENT
  Age: 79 Year
  Sex: Male

DRUGS (1)
  1. DICLOFENAC SODIUM DELAYED-RELEASE TABLETS, 50 MG (PUREPAC) (DICLOFENAC [Suspect]
     Indication: ARTHRITIS
     Dosage: 50 MG; TID; PO
     Route: 048
     Dates: end: 20080923

REACTIONS (1)
  - GASTROINTESTINAL HAEMORRHAGE [None]
